FAERS Safety Report 19767446 (Version 1)
Quarter: 2021Q3

REPORT INFORMATION
  Report Type: Report from Study
  Country: IN (occurrence: IN)
  Receive Date: 20210830
  Receipt Date: 20210830
  Transmission Date: 20211014
  Serious: Yes (Death)
  Sender: FDA-Public Use
  Company Number: IN-ASTRAZENECA-2021A703627

PATIENT
  Age: 70 Year
  Sex: Male

DRUGS (2)
  1. CALQUENCE [Suspect]
     Active Substance: ACALABRUTINIB
     Route: 048
  2. IMFINZI [Suspect]
     Active Substance: DURVALUMAB
     Indication: BLADDER CANCER
     Route: 041
     Dates: start: 20210307, end: 20210605

REACTIONS (5)
  - Death [Fatal]
  - Burning sensation [Unknown]
  - Fatigue [Unknown]
  - Dyspnoea [Unknown]
  - Bedridden [Unknown]
